FAERS Safety Report 4354849-4 (Version None)
Quarter: 2004Q2

REPORT INFORMATION
  Report Type: 
  Country: None (occurrence: None)
  Receive Date: 20040507
  Receipt Date: 20040423
  Transmission Date: 20050107
  Serious: Yes (Other)
  Sender: FDA-Public Use
  Company Number: AU-GLAXOSMITHKLINE-B0331258A

PATIENT
  Age: 50 Year
  Sex: Female

DRUGS (4)
  1. IMIGRAN [Suspect]
     Indication: MIGRAINE
     Dosage: 20MCG TWICE PER DAY
     Route: 045
     Dates: start: 20030101
  2. EFFEXOR [Suspect]
     Dosage: 450MG PER DAY
     Route: 048
     Dates: start: 20030101
  3. AVANZA [Suspect]
     Dosage: 60MG PER DAY
     Route: 048
     Dates: start: 20030101
  4. FLUARIX [Concomitant]
     Route: 030
     Dates: start: 20040401, end: 20040401

REACTIONS (13)
  - ANXIETY [None]
  - CHILLS [None]
  - DRUG INTERACTION [None]
  - INFLUENZA [None]
  - IRRITABILITY [None]
  - MALAISE [None]
  - MOOD ALTERED [None]
  - NAUSEA [None]
  - NERVOUSNESS [None]
  - PALLOR [None]
  - PYREXIA [None]
  - SEROTONIN SYNDROME [None]
  - VASOCONSTRICTION [None]
